FAERS Safety Report 9672245 (Version 1)
Quarter: 2013Q4

REPORT INFORMATION
  Report Type: Spontaneous
  Country: US (occurrence: US)
  Receive Date: 20131106
  Receipt Date: 20131106
  Transmission Date: 20140711
  Serious: Yes (Hospitalization)
  Sender: FDA-Public Use
  Company Number: US-BAXTER-2013BAX042869

PATIENT
  Age: 68 Year
  Sex: Female

DRUGS (2)
  1. DIANEAL LOW CALCIUM [Suspect]
     Indication: PERITONEAL DIALYSIS
     Route: 033
     Dates: start: 20100922
  2. DIANEAL LOW CALCIUM [Suspect]
     Indication: PERITONEAL DIALYSIS
     Route: 033
     Dates: start: 20100922

REACTIONS (2)
  - Clostridium difficile infection [Recovered/Resolved]
  - Aortic valve stenosis [Not Recovered/Not Resolved]
